FAERS Safety Report 21292669 (Version 4)
Quarter: 2023Q1

REPORT INFORMATION
  Report Type: Other
  Country: US (occurrence: None)
  Receive Date: 20220905
  Receipt Date: 20230220
  Transmission Date: 20230418
  Serious: Yes (Hospitalization)
  Sender: FDA-Public Use
  Company Number: US-ROCHE-3166930

PATIENT
  Age: 48 Year
  Sex: Female
  Weight: 64.468 kg

DRUGS (8)
  1. OCREVUS [Suspect]
     Active Substance: OCRELIZUMAB
     Indication: Relapsing multiple sclerosis
     Dosage: EVERY SIX MONTHS ;ONGOING: YES
     Route: 042
     Dates: start: 20190708
  2. OCREVUS [Suspect]
     Active Substance: OCRELIZUMAB
     Dosage: ONGOING NO, 4 HOUR LONG INFUSION
     Route: 042
     Dates: start: 201807, end: 20221129
  3. FLUDROCORTISONE [Concomitant]
     Active Substance: FLUDROCORTISONE
  4. MONTELUKAST [Concomitant]
     Active Substance: MONTELUKAST SODIUM
  5. ESCITALOPRAM [Concomitant]
     Active Substance: ESCITALOPRAM OXALATE
  6. METHIMAZOLE [Concomitant]
     Active Substance: METHIMAZOLE
  7. AMPYRA [Concomitant]
     Active Substance: DALFAMPRIDINE
  8. TRAZODONE [Concomitant]
     Active Substance: TRAZODONE HYDROCHLORIDE

REACTIONS (8)
  - Pneumonia bacterial [Recovered/Resolved]
  - JC polyomavirus test positive [Unknown]
  - Asthma [Unknown]
  - Ear infection [Recovered/Resolved]
  - Chronic sinusitis [Recovered/Resolved]
  - Fall [Unknown]
  - Urinary tract infection [Unknown]
  - Fungal infection [Unknown]

NARRATIVE: CASE EVENT DATE: 20210928
